FAERS Safety Report 6650879-8 (Version None)
Quarter: 2010Q1

REPORT INFORMATION
  Report Type: 
  Country: None (occurrence: None)
  Receive Date: 20100325
  Receipt Date: 20100226
  Transmission Date: 20100710
  Serious: No
  Sender: FDA-Public Use
  Company Number: US-BIOGENIDEC-2010BI007775

PATIENT
  Sex: Female

DRUGS (2)
  1. TYSABRI [Suspect]
     Indication: MULTIPLE SCLEROSIS
     Route: 042
     Dates: start: 20080301
  2. PAXIL [Concomitant]
     Indication: DEPRESSION

REACTIONS (7)
  - DIARRHOEA [None]
  - DISSOCIATION [None]
  - FATIGUE [None]
  - HYPOAESTHESIA FACIAL [None]
  - MEMORY IMPAIRMENT [None]
  - MULTIPLE SCLEROSIS RELAPSE [None]
  - STRESS [None]
